FAERS Safety Report 13931271 (Version 1)
Quarter: 2017Q3

REPORT INFORMATION
  Report Type: Spontaneous
  Country: US (occurrence: US)
  Receive Date: 20170903
  Receipt Date: 20170903
  Transmission Date: 20171127
  Serious: No
  Sender: FDA-Public Use
  Company Number: US-TOLMAR, INC.-2017US003013

PATIENT
  Age: 62 Year
  Sex: Male

DRUGS (7)
  1. FLUTICASONE. [Concomitant]
     Active Substance: FLUTICASONE
  2. FLOMAX [Concomitant]
     Active Substance: TAMSULOSIN HYDROCHLORIDE
  3. MONTELUKAST [Concomitant]
     Active Substance: MONTELUKAST SODIUM
  4. ELIGARD [Suspect]
     Active Substance: LEUPROLIDE ACETATE
     Indication: PROSTATE CANCER
     Dosage: 22.5 MG, Q3MONTHS
     Route: 058
  5. VITAMIN D [Concomitant]
     Active Substance: CHOLECALCIFEROL
  6. METFORMIN [Concomitant]
     Active Substance: METFORMIN HYDROCHLORIDE
  7. LORATADINE. [Concomitant]
     Active Substance: LORATADINE

REACTIONS (1)
  - Syncope [Unknown]
